FAERS Safety Report 9702286 (Version 1)
Quarter: 2013Q4

REPORT INFORMATION
  Report Type: Report from Study
  Country: US (occurrence: US)
  Receive Date: 20131121
  Receipt Date: 20131121
  Transmission Date: 20140711
  Serious: Yes (Death)
  Sender: FDA-Public Use
  Company Number: US-ROCHE-1304789

PATIENT
  Age: 58 Year
  Sex: Male

DRUGS (1)
  1. XELODA [Suspect]
     Indication: COLORECTAL CANCER METASTATIC
     Dosage: EVERY AM, EVERY PM
     Route: 048
     Dates: start: 20130921, end: 20131019

REACTIONS (1)
  - Death [Fatal]
